FAERS Safety Report 6831933-4 (Version None)
Quarter: 2010Q3

REPORT INFORMATION
  Report Type: 
  Country: None (occurrence: None)
  Receive Date: 20100712
  Receipt Date: 20100702
  Transmission Date: 20110219
  Serious: Yes (Death, Hospitalization)
  Sender: FDA-Public Use
  Company Number: FR-ROCHE-623733

PATIENT
  Age: 89 Year
  Sex: Female

DRUGS (3)
  1. VALIUM [Suspect]
     Indication: PRODUCT USED FOR UNKNOWN INDICATION
     Route: 048
     Dates: end: 20090301
  2. VASTAREL [Suspect]
     Indication: PRODUCT USED FOR UNKNOWN INDICATION
     Route: 048
     Dates: end: 20090301
  3. TANAKAN [Concomitant]

REACTIONS (3)
  - ECCHYMOSIS [None]
  - FALL [None]
  - UPPER LIMB FRACTURE [None]
